FAERS Safety Report 5908443-1 (Version None)
Quarter: 2008Q3

REPORT INFORMATION
  Report Type: 
  Country: None (occurrence: None)
  Receive Date: 20080930
  Receipt Date: 20080825
  Transmission Date: 20090109
  Serious: Yes (Death, Other)
  Sender: FDA-Public Use
  Company Number: 002#2#2008-00370

PATIENT
  Age: 81 Year
  Sex: Male

DRUGS (3)
  1. NEUPRO [Suspect]
     Indication: CENTRAL NERVOUS SYSTEM LYMPHOMA
     Dosage: 6MG/24H, 1 IN 1, TRANSDERMAL; 4MG/24H, 1 IN 1 D, TRANSDERMAL
     Route: 062
  2. NEUPRO [Suspect]
     Indication: PARKINSONISM
     Dosage: 6MG/24H, 1 IN 1, TRANSDERMAL; 4MG/24H, 1 IN 1 D, TRANSDERMAL
     Route: 062
  3. STALEVO 100 [Concomitant]

REACTIONS (9)
  - CENTRAL NERVOUS SYSTEM LYMPHOMA [None]
  - COMA [None]
  - DISEASE RECURRENCE [None]
  - DRUG DOSE OMISSION [None]
  - DYSPHAGIA [None]
  - LOSS OF CONSCIOUSNESS [None]
  - NEUROLEPTIC MALIGNANT SYNDROME [None]
  - PHARMACEUTICAL PRODUCT COMPLAINT [None]
  - PNEUMONIA [None]
